FAERS Safety Report 25518370 (Version 1)
Quarter: 2025Q3

REPORT INFORMATION
  Report Type: Spontaneous
  Country: US (occurrence: US)
  Receive Date: 20250704
  Receipt Date: 20250704
  Transmission Date: 20251020
  Serious: No
  Sender: Kenvue
  Company Number: US-KENVUE-20250611235

PATIENT
  Sex: Male

DRUGS (7)
  1. MENS ROGAINE EXTRA STRENGTH [Suspect]
     Active Substance: MINOXIDIL
     Indication: Alopecia
     Route: 065
  2. olaplex - Shampoo [Concomitant]
     Indication: Product used for unknown indication
     Route: 065
  3. olaplex - Conditioner [Concomitant]
     Indication: Product used for unknown indication
     Route: 065
  4. Leave-in Styling Treatment [Concomitant]
     Indication: Product used for unknown indication
     Route: 065
  5. Leave-in Conditioner [Concomitant]
     Indication: Product used for unknown indication
     Route: 065
  6. Hair Perfector [Concomitant]
     Indication: Product used for unknown indication
     Route: 065
  7. Bonding Oil kerastase_official - Elixir Ultime [Concomitant]
     Indication: Product used for unknown indication
     Route: 065

REACTIONS (2)
  - Product use in unapproved indication [Unknown]
  - Therapeutic response unexpected [Unknown]
